FAERS Safety Report 19840602 (Version 1)
Quarter: 2021Q3

REPORT INFORMATION
  Report Type: Spontaneous
  Country: DE (occurrence: DE)
  Receive Date: 20210915
  Receipt Date: 20210915
  Transmission Date: 20211014
  Serious: Yes (Other)
  Sender: FDA-Public Use
  Company Number: DE-ROCHE-2909033

PATIENT
  Age: 13 Year

DRUGS (2)
  1. HEMLIBRA [Suspect]
     Active Substance: EMICIZUMAB-KXWH
     Dosage: 53 KG } 150 MG
     Route: 065
     Dates: start: 2020
  2. HEMLIBRA [Suspect]
     Active Substance: EMICIZUMAB-KXWH
     Indication: FACTOR VIII DEFICIENCY
     Dosage: 59 KG } 180 MG
     Route: 065

REACTIONS (3)
  - Muscle haemorrhage [Unknown]
  - Wound [Unknown]
  - Central venous catheter removal [Unknown]
